FAERS Safety Report 6655726-6 (Version None)
Quarter: 2010Q1

REPORT INFORMATION
  Report Type: 
  Country: None (occurrence: None)
  Receive Date: 20100329
  Receipt Date: 20100326
  Transmission Date: 20100710
  Serious: Yes (Death)
  Sender: FDA-Public Use
  Company Number: JP-EISAI INC.-E2020-06305-CLI-JP

PATIENT
  Sex: Female
  Weight: 40 kg

DRUGS (3)
  1. ARICEPT [Suspect]
     Route: 048
     Dates: start: 20090324
  2. NORVASC [Suspect]
     Route: 048
     Dates: start: 20070330
  3. LIPITOR [Suspect]
     Route: 048
     Dates: start: 20070814

REACTIONS (1)
  - VOMITING [None]
